FAERS Safety Report 21097361 (Version 2)
Quarter: 2022Q4

REPORT INFORMATION
  Report Type: Spontaneous
  Country: US (occurrence: US)
  Receive Date: 20220719
  Receipt Date: 20221028
  Transmission Date: 20230113
  Serious: Yes (Other)
  Sender: FDA-Public Use
  Company Number: US-BRISTOL-MYERS SQUIBB COMPANY-BMS-2022-040080

PATIENT
  Age: 83 Year
  Sex: Male
  Weight: 81.65 kg

DRUGS (5)
  1. OPDIVO [Suspect]
     Active Substance: NIVOLUMAB
     Indication: Non-small cell lung cancer
     Dosage: TAKING OPDIVO FOR 4-5 YEARS
     Route: 042
  2. ELIQUIS [Suspect]
     Active Substance: APIXABAN
     Indication: Atrial fibrillation
     Dosage: BEGAN TWO YEARS AGO
     Route: 048
  3. COUMADIN [Concomitant]
     Active Substance: WARFARIN SODIUM
     Indication: Atrial fibrillation
     Dosage: FOR 8-10 YEARS
     Route: 065
  4. LEVOTHYROXINE [Concomitant]
     Active Substance: LEVOTHYROXINE
     Indication: Thyroid disorder
     Route: 048
  5. DILTIAZEM [Concomitant]
     Active Substance: DILTIAZEM
     Indication: Hypertension
     Dosage: BEGAN 20 YEARS AGO
     Route: 065

REACTIONS (6)
  - Haematochezia [Unknown]
  - Pruritus [Unknown]
  - Dysphagia [Not Recovered/Not Resolved]
  - Bowel movement irregularity [Unknown]
  - Skin exfoliation [Unknown]
  - Haemoglobin decreased [Recovering/Resolving]
